FAERS Safety Report 9267292 (Version 2)
Quarter: 2015Q4

REPORT INFORMATION
  Report Type: Spontaneous
  Country: US (occurrence: US)
  Receive Date: 20130502
  Receipt Date: 20151230
  Transmission Date: 20160305
  Serious: Yes (Hospitalization, Other)
  Sender: FDA-Public Use
  Company Number: US-BAYER-2013-053359

PATIENT
  Age: 43 Year
  Sex: Female

DRUGS (8)
  1. HYDROCODONE BITARTRATE AND ACETAMINOPHEN [Concomitant]
     Active Substance: ACETAMINOPHEN\HYDROCODONE BITARTRATE
     Dosage: 5/500 MG AND 7.5/750 MG TABLETS AS NEEDED
     Route: 048
  2. PROPOXYPHENE NAPSYLATE W/PARACETAMOL [Concomitant]
     Dosage: 100/650 MG, PRN
     Route: 048
  3. IRON [CITRIC ACID,FERROUS SULFATE] [Concomitant]
     Active Substance: IRON
  4. DEXTROSE W/SODIUM CHLORIDE [Concomitant]
  5. PENICILLIN VK [Concomitant]
     Active Substance: PENICILLIN V POTASSIUM
     Dosage: 500 MG, QID
     Route: 048
  6. HYDROXYZINE [Concomitant]
     Active Substance: HYDROXYZINE\HYDROXYZINE HYDROCHLORIDE
     Dosage: 100 MG, UNK
     Route: 048
  7. YASMIN [Suspect]
     Active Substance: DROSPIRENONE\ETHINYL ESTRADIOL
  8. ICAR-C [Concomitant]

REACTIONS (2)
  - Embolism arterial [None]
  - Cerebrovascular accident [None]

NARRATIVE: CASE EVENT DATE: 20060504
